FAERS Safety Report 14639454 (Version 9)
Quarter: 2020Q1

REPORT INFORMATION
  Report Type: Spontaneous
  Country: CA (occurrence: CA)
  Receive Date: 20180315
  Receipt Date: 20200207
  Transmission Date: 20200409
  Serious: Yes (Other)
  Sender: FDA-Public Use
  Company Number: CA-ORION CORPORATION ORION PHARMA-TREX2018-0774

PATIENT
  Age: 25 Year
  Sex: Female

DRUGS (28)
  1. METHOTREXATE (TRADE NAME UNKNOWN) [Suspect]
     Active Substance: METHOTREXATE
     Indication: RHEUMATOID ARTHRITIS
     Route: 048
  2. METHOTREXATE (TRADE NAME UNKNOWN) [Suspect]
     Active Substance: METHOTREXATE
     Indication: DRUG INEFFECTIVE
  3. REMICADE [Suspect]
     Active Substance: INFLIXIMAB
     Route: 042
  4. REMICADE [Suspect]
     Active Substance: INFLIXIMAB
     Route: 042
  5. REMICADE [Suspect]
     Active Substance: INFLIXIMAB
     Route: 042
  6. ENBREL [Suspect]
     Active Substance: ETANERCEPT
     Indication: PSORIATIC ARTHROPATHY
     Route: 058
  7. SULFASALAZINE. [Suspect]
     Active Substance: SULFASALAZINE
     Indication: DRUG INEFFECTIVE
     Route: 065
  8. DICLOFENAC [Suspect]
     Active Substance: DICLOFENAC
     Indication: PRODUCT USED FOR UNKNOWN INDICATION
     Route: 065
  9. REMICADE [Suspect]
     Active Substance: INFLIXIMAB
     Dosage: CYCLICAL
     Route: 042
  10. DICLOFENAC SODIUM. [Suspect]
     Active Substance: DICLOFENAC SODIUM
     Route: 065
  11. METHOTREXATE (TRADE NAME UNKNOWN) [Suspect]
     Active Substance: METHOTREXATE
     Indication: PSORIATIC ARTHROPATHY
     Route: 065
  12. SULFASALAZINE. [Suspect]
     Active Substance: SULFASALAZINE
     Indication: RHEUMATOID ARTHRITIS
     Route: 048
  13. ACTEMRA [Suspect]
     Active Substance: TOCILIZUMAB
     Indication: PRODUCT USED FOR UNKNOWN INDICATION
     Route: 042
  14. PREDNISONE. [Suspect]
     Active Substance: PREDNISONE
     Indication: DRUG INEFFECTIVE
     Route: 048
  15. REMICADE [Suspect]
     Active Substance: INFLIXIMAB
     Indication: PRODUCT USED FOR UNKNOWN INDICATION
     Route: 042
  16. REMICADE [Suspect]
     Active Substance: INFLIXIMAB
     Route: 042
  17. SIMPONI [Suspect]
     Active Substance: GOLIMUMAB
     Indication: PRODUCT USED FOR UNKNOWN INDICATION
     Route: 058
  18. DICLOFENAC SODIUM. [Suspect]
     Active Substance: DICLOFENAC SODIUM
     Indication: PRODUCT USED FOR UNKNOWN INDICATION
     Route: 065
  19. HUMIRA [Suspect]
     Active Substance: ADALIMUMAB
     Indication: PRODUCT USED FOR UNKNOWN INDICATION
     Route: 058
  20. REMICADE [Suspect]
     Active Substance: INFLIXIMAB
     Dosage: 3 UNKNOWN
     Route: 042
  21. REMICADE [Suspect]
     Active Substance: INFLIXIMAB
     Route: 042
  22. ENBREL [Suspect]
     Active Substance: ETANERCEPT
     Indication: RHEUMATOID ARTHRITIS
     Dosage: 2 TIMES/WEEK
     Route: 058
  23. DICLOFENAC [Suspect]
     Active Substance: DICLOFENAC
     Route: 065
  24. HUMIRA [Suspect]
     Active Substance: ADALIMUMAB
     Route: 065
  25. XELJANZ [Concomitant]
     Active Substance: TOFACITINIB CITRATE
     Route: 065
  26. ACTEMRA [Suspect]
     Active Substance: TOCILIZUMAB
     Route: 042
  27. REMICADE [Suspect]
     Active Substance: INFLIXIMAB
     Route: 042
  28. REMICADE [Suspect]
     Active Substance: INFLIXIMAB
     Route: 042

REACTIONS (6)
  - Pneumonitis [Unknown]
  - Herpes zoster [Unknown]
  - Rheumatoid arthritis [Unknown]
  - Drug ineffective [Unknown]
  - Therapeutic product effect decreased [Unknown]
  - Drug resistance [Unknown]
